FAERS Safety Report 20460781 (Version 2)
Quarter: 2022Q1

REPORT INFORMATION
  Report Type: Spontaneous
  Country: US (occurrence: US)
  Receive Date: 20220211
  Receipt Date: 20220221
  Transmission Date: 20220423
  Serious: Yes (Death, Other)
  Sender: FDA-Public Use
  Company Number: US-PFIZER INC-202200227487

PATIENT
  Age: 59 Year
  Sex: Male

DRUGS (6)
  1. PHENYTOIN [Suspect]
     Active Substance: PHENYTOIN
     Indication: Seizure
     Dosage: 300 MG, DAILY
     Route: 042
  2. PHENYTOIN [Suspect]
     Active Substance: PHENYTOIN
     Indication: Simple partial seizures
     Dosage: 500 MG
     Route: 042
  3. VALIUM [Concomitant]
     Active Substance: DIAZEPAM
     Indication: Simple partial seizures
     Dosage: 10 MG
  4. AMPICILLIN [Concomitant]
     Active Substance: AMPICILLIN
     Indication: Pneumonia
     Dosage: UNK
  5. DIGOXIN [Concomitant]
     Active Substance: DIGOXIN
     Indication: Pneumonia
     Dosage: UNK
  6. CATAPRES [Concomitant]
     Active Substance: CLONIDINE HYDROCHLORIDE
     Indication: Pneumonia
     Dosage: UNK

REACTIONS (6)
  - Vasculitis necrotising [Fatal]
  - Dyspnoea [Fatal]
  - Eosinophilia [Fatal]
  - Lung infiltration [Fatal]
  - Rash [Unknown]
  - Drug hypersensitivity [Unknown]
